FAERS Safety Report 12114086 (Version 5)
Quarter: 2018Q2

REPORT INFORMATION
  Report Type: Report from Study
  Country: JP (occurrence: JP)
  Receive Date: 20160225
  Receipt Date: 20180605
  Transmission Date: 20180711
  Serious: Yes (Other)
  Sender: FDA-Public Use
  Company Number: JP-ASTELLAS-2008JP005019

PATIENT
  Age: 35 Year
  Sex: Female

DRUGS (116)
  1. TACROLIMUS. [Suspect]
     Active Substance: TACROLIMUS
     Route: 048
     Dates: start: 20171011
  2. RINDERON VG [Concomitant]
     Active Substance: BETAMETHASONE VALERATE\GENTAMICIN SULFATE
     Indication: SYSTEMIC LUPUS ERYTHEMATOSUS RASH
     Dosage: UNK UNK, UNKNOWN FREQ.
     Route: 061
     Dates: start: 20081015, end: 20090121
  3. LACTEC                             /00490001/ [Concomitant]
     Indication: GASTROENTERITIS
     Route: 041
     Dates: start: 20090724, end: 20090724
  4. LOCOID [Concomitant]
     Active Substance: HYDROCORTISONE BUTYRATE
     Indication: SYSTEMIC LUPUS ERYTHEMATOSUS RASH
     Dosage: ADEQUATE DOSE
     Route: 061
     Dates: start: 20100609, end: 20100831
  5. GENINAX [Concomitant]
     Active Substance: GARENOXACIN MESYLATE
     Indication: BRONCHITIS
     Route: 048
     Dates: start: 20100901, end: 20100906
  6. GENINAX [Concomitant]
     Active Substance: GARENOXACIN MESYLATE
     Indication: SIALOADENITIS
     Route: 048
     Dates: start: 20160608, end: 20160612
  7. ASTHPHYLLIN                        /00231301/ [Concomitant]
     Indication: BRONCHITIS
     Route: 048
     Dates: start: 20101201, end: 20110329
  8. PREDONINE [Concomitant]
     Active Substance: PREDNISOLONE
     Indication: SYSTEMIC LUPUS ERYTHEMATOSUS RASH
     Route: 048
     Dates: start: 20080214, end: 20080312
  9. PREDONINE [Concomitant]
     Active Substance: PREDNISOLONE
     Route: 048
     Dates: start: 20080703, end: 20080730
  10. PREDONINE [Concomitant]
     Active Substance: PREDNISOLONE
     Route: 048
     Dates: start: 20080731, end: 20080819
  11. PREDONINE [Concomitant]
     Active Substance: PREDNISOLONE
     Route: 048
     Dates: start: 20090528, end: 20090624
  12. PREDONINE [Concomitant]
     Active Substance: PREDNISOLONE
     Route: 048
     Dates: start: 20100120, end: 20100831
  13. PREDONINE [Concomitant]
     Active Substance: PREDNISOLONE
     Route: 048
     Dates: start: 20130418, end: 20130911
  14. PREDONINE [Concomitant]
     Active Substance: PREDNISOLONE
     Route: 048
     Dates: start: 20130912, end: 20131119
  15. PREDONINE [Concomitant]
     Active Substance: PREDNISOLONE
     Route: 048
     Dates: start: 20150213, end: 20150616
  16. PARIET [Concomitant]
     Active Substance: RABEPRAZOLE SODIUM
     Indication: PROPHYLAXIS
     Route: 048
     Dates: end: 20171024
  17. TACROLIMUS. [Suspect]
     Active Substance: TACROLIMUS
     Indication: LUPUS NEPHRITIS
     Route: 048
     Dates: start: 20080110, end: 20090415
  18. DERMOVATE [Concomitant]
     Active Substance: CLOBETASOL
     Indication: SYSTEMIC LUPUS ERYTHEMATOSUS RASH
     Dosage: ADEQUATE DOSE
     Route: 061
     Dates: start: 20081112, end: 20090121
  19. MUCODYNE [Concomitant]
     Active Substance: CARBOCYSTEINE
     Route: 048
     Dates: start: 20110223, end: 20110329
  20. VOLTAREN [Concomitant]
     Active Substance: DICLOFENAC SODIUM
     Indication: ARTHRITIS
     Dosage: ADEQUATE DOSE
     Route: 062
     Dates: start: 20080409, end: 20080730
  21. PREDONINE [Concomitant]
     Active Substance: PREDNISOLONE
     Route: 048
     Dates: start: 20090730, end: 20090804
  22. PREDONINE [Concomitant]
     Active Substance: PREDNISOLONE
     Route: 048
     Dates: start: 20110608, end: 20110906
  23. PREDONINE [Concomitant]
     Active Substance: PREDNISOLONE
     Route: 048
     Dates: start: 20140116, end: 20140212
  24. PREDONINE [Concomitant]
     Active Substance: PREDNISOLONE
     Route: 048
     Dates: start: 20141107, end: 20150212
  25. PREDONINE [Concomitant]
     Active Substance: PREDNISOLONE
     Route: 048
     Dates: start: 20170126, end: 20170208
  26. PREDONINE [Concomitant]
     Active Substance: PREDNISOLONE
     Route: 048
     Dates: start: 20171011
  27. PROCYLIN [Concomitant]
     Active Substance: BERAPROST SODIUM
     Route: 048
     Dates: start: 20171012, end: 20171025
  28. RIMATIL [Concomitant]
     Active Substance: BUCILLAMINE
     Indication: SYSTEMIC LUPUS ERYTHEMATOSUS
     Route: 048
     Dates: start: 20130214
  29. MUCOSOLVAN [Concomitant]
     Active Substance: AMBROXOL HYDROCHLORIDE
     Indication: BRONCHITIS
     Route: 048
     Dates: start: 20101228, end: 20110329
  30. MUCOSOLVAN [Concomitant]
     Active Substance: AMBROXOL HYDROCHLORIDE
     Indication: BRONCHITIS
     Route: 048
     Dates: start: 20151202, end: 20151228
  31. CRAVIT [Concomitant]
     Active Substance: LEVOFLOXACIN
     Indication: BRONCHITIS
     Route: 048
     Dates: start: 20151216, end: 20151219
  32. LOXONIN [Concomitant]
     Active Substance: LOXOPROFEN SODIUM
     Indication: ARTHRITIS
     Route: 048
     Dates: end: 20080408
  33. LOXONIN [Concomitant]
     Active Substance: LOXOPROFEN SODIUM
     Indication: ARTHRITIS
     Route: 048
     Dates: start: 20080409, end: 20080506
  34. PREDONINE [Concomitant]
     Active Substance: PREDNISOLONE
     Indication: ARTHRITIS
     Route: 048
     Dates: start: 20080313, end: 20080409
  35. PREDONINE [Concomitant]
     Active Substance: PREDNISOLONE
     Route: 048
     Dates: start: 20100901, end: 20110607
  36. PREDONINE [Concomitant]
     Active Substance: PREDNISOLONE
     Route: 048
     Dates: start: 20140507, end: 20141106
  37. PREDONINE [Concomitant]
     Active Substance: PREDNISOLONE
     Route: 048
     Dates: start: 20170615, end: 20170712
  38. JUVELA N [Concomitant]
     Active Substance: TOCOPHERYL NICOTINATE, D-.ALPHA.
     Indication: SYSTEMIC LUPUS ERYTHEMATOSUS
     Route: 048
     Dates: end: 20150212
  39. TRANSAMIN [Concomitant]
     Active Substance: TRANEXAMIC ACID
     Indication: BRONCHITIS
     Route: 048
     Dates: start: 20100901, end: 20100915
  40. ASTHPHYLLIN                        /00231301/ [Concomitant]
     Indication: PHARYNGITIS
     Route: 048
     Dates: start: 20091225, end: 20091231
  41. MUCODYNE [Concomitant]
     Active Substance: CARBOCYSTEINE
     Indication: BRONCHITIS
     Route: 048
     Dates: start: 20100901, end: 20100915
  42. PREDONINE [Concomitant]
     Active Substance: PREDNISOLONE
     Route: 048
     Dates: start: 20080820, end: 20080916
  43. PREDONINE [Concomitant]
     Active Substance: PREDNISOLONE
     Route: 048
     Dates: start: 20090805, end: 20090807
  44. PREDONINE [Concomitant]
     Active Substance: PREDNISOLONE
     Route: 048
     Dates: start: 20090820, end: 20090902
  45. PREDONINE [Concomitant]
     Active Substance: PREDNISOLONE
     Route: 048
     Dates: start: 20120118, end: 20120313
  46. PREDONINE [Concomitant]
     Active Substance: PREDNISOLONE
     Route: 048
     Dates: start: 20120314, end: 20120508
  47. ANPLAG [Concomitant]
     Active Substance: SARPOGRELATE
     Indication: SYSTEMIC LUPUS ERYTHEMATOSUS
     Route: 048
     Dates: end: 20171008
  48. PROCYLIN [Concomitant]
     Active Substance: BERAPROST SODIUM
     Indication: SYSTEMIC LUPUS ERYTHEMATOSUS
     Route: 048
     Dates: end: 20171008
  49. JUVELA N [Concomitant]
     Active Substance: TOCOPHERYL NICOTINATE, D-.ALPHA.
     Indication: PROPHYLAXIS
  50. LYRICA [Concomitant]
     Active Substance: PREGABALIN
     Indication: ARTHRITIS
     Route: 048
     Dates: start: 20140212
  51. LYRICA [Concomitant]
     Active Substance: PREGABALIN
     Indication: SYSTEMIC LUPUS ERYTHEMATOSUS
  52. CELECOX [Concomitant]
     Active Substance: CELECOXIB
     Route: 048
     Dates: start: 20161222
  53. TACROLIMUS. [Suspect]
     Active Substance: TACROLIMUS
     Route: 048
     Dates: start: 20090416, end: 20110802
  54. LOCOID [Concomitant]
     Active Substance: HYDROCORTISONE BUTYRATE
     Dosage: ADEQUATE DOSE
     Route: 061
     Dates: start: 20131120, end: 20150212
  55. LAMISIL [Concomitant]
     Active Substance: TERBINAFINE HYDROCHLORIDE
     Indication: TINEA INFECTION
     Dosage: ADEQUATE DOSE
     Route: 061
     Dates: start: 20100901, end: 20100928
  56. RIMATIL [Concomitant]
     Active Substance: BUCILLAMINE
     Indication: ARTHRITIS
     Route: 048
     Dates: start: 20080717, end: 20080730
  57. LOXONIN [Concomitant]
     Active Substance: LOXOPROFEN SODIUM
     Route: 048
     Dates: end: 20140905
  58. PREDONINE [Concomitant]
     Active Substance: PREDNISOLONE
     Indication: LUPUS NEPHRITIS
     Route: 048
     Dates: end: 20080213
  59. PREDONINE [Concomitant]
     Active Substance: PREDNISOLONE
     Route: 048
     Dates: start: 20100120, end: 20110607
  60. PREDONINE [Concomitant]
     Active Substance: PREDNISOLONE
     Route: 048
     Dates: start: 20121219, end: 20130115
  61. PREDONINE [Concomitant]
     Active Substance: PREDNISOLONE
     Route: 048
     Dates: start: 20140409, end: 20140506
  62. PREDONINE [Concomitant]
     Active Substance: PREDNISOLONE
     Route: 048
     Dates: start: 20151118, end: 20160119
  63. PREDONINE [Concomitant]
     Active Substance: PREDNISOLONE
     Route: 048
     Dates: start: 20160120, end: 20160907
  64. PREDONINE [Concomitant]
     Active Substance: PREDNISOLONE
     Route: 048
     Dates: start: 20170209, end: 20170301
  65. PREDONINE [Concomitant]
     Active Substance: PREDNISOLONE
     Route: 048
     Dates: start: 20170713, end: 20171009
  66. FOSAMAC [Concomitant]
     Active Substance: ALENDRONATE SODIUM
     Indication: PROPHYLAXIS
     Route: 048
     Dates: end: 20170124
  67. ADOFEED [Concomitant]
     Active Substance: FLURBIPROFEN
     Indication: SYSTEMIC LUPUS ERYTHEMATOSUS
  68. TACROLIMUS. [Suspect]
     Active Substance: TACROLIMUS
     Route: 048
     Dates: start: 20110803, end: 20171009
  69. RINDERON VG [Concomitant]
     Active Substance: BETAMETHASONE VALERATE\GENTAMICIN SULFATE
     Dosage: ADEQUATE DOSE
     Route: 061
     Dates: start: 20120822, end: 20131119
  70. DERMOVATE [Concomitant]
     Active Substance: CLOBETASOL
     Dosage: ADEQUATE DOSE
     Route: 061
     Dates: start: 20120926, end: 20131204
  71. PRIMPERAN [Concomitant]
     Active Substance: METOCLOPRAMIDE HYDROCHLORIDE
     Indication: GASTROENTERITIS
     Route: 065
     Dates: start: 20090724, end: 20090724
  72. ASTHPHYLLIN                        /00231301/ [Concomitant]
     Indication: BRONCHITIS
     Route: 048
     Dates: start: 20100901, end: 20100915
  73. MUCODYNE [Concomitant]
     Active Substance: CARBOCYSTEINE
     Route: 048
     Dates: start: 20151202, end: 20151228
  74. PREDONINE [Concomitant]
     Active Substance: PREDNISOLONE
     Route: 048
     Dates: start: 20080917, end: 20090527
  75. PREDONINE [Concomitant]
     Active Substance: PREDNISOLONE
     Route: 048
     Dates: start: 20110907, end: 20120117
  76. PREDONINE [Concomitant]
     Active Substance: PREDNISOLONE
     Route: 048
     Dates: start: 20120509, end: 20121218
  77. PREDONINE [Concomitant]
     Active Substance: PREDNISOLONE
     Route: 048
     Dates: start: 20130116, end: 20130417
  78. PREDONINE [Concomitant]
     Active Substance: PREDNISOLONE
     Route: 048
     Dates: start: 20131120, end: 20131124
  79. PREDONINE [Concomitant]
     Active Substance: PREDNISOLONE
     Route: 048
     Dates: start: 20131125, end: 20131204
  80. PREDONINE [Concomitant]
     Active Substance: PREDNISOLONE
     Route: 048
     Dates: start: 20140312, end: 20140408
  81. PREDONINE [Concomitant]
     Active Substance: PREDNISOLONE
     Route: 048
     Dates: start: 20170302, end: 20170517
  82. PREDONINE [Concomitant]
     Active Substance: PREDNISOLONE
     Route: 048
     Dates: start: 20170518, end: 20170614
  83. LYRICA [Concomitant]
     Active Substance: PREGABALIN
     Indication: HERPES ZOSTER
  84. TOPSYM [Concomitant]
     Indication: ALOPECIA AREATA
     Dosage: ADEQUATE DOSE
     Route: 065
     Dates: start: 20140627, end: 20150410
  85. DENOTAS [Concomitant]
     Active Substance: CALCIUM CARBONATE\CHOLECALCIFEROL\MAGNESIUM CARBONATE
     Indication: PROPHYLAXIS
     Route: 048
     Dates: start: 20151118, end: 20170126
  86. CELECOX [Concomitant]
     Active Substance: CELECOXIB
     Indication: PAIN IN EXTREMITY
     Route: 048
     Dates: start: 20160525, end: 20161221
  87. RINDERON VG [Concomitant]
     Active Substance: BETAMETHASONE VALERATE\GENTAMICIN SULFATE
     Dosage: ADEQUATE DOSE
     Route: 061
     Dates: start: 20150213, end: 20170126
  88. LOCOID [Concomitant]
     Active Substance: HYDROCORTISONE BUTYRATE
     Dosage: ADEQUATE DOSE
     Route: 061
     Dates: start: 20110126, end: 20110126
  89. MUCODYNE [Concomitant]
     Active Substance: CARBOCYSTEINE
     Indication: PHARYNGITIS
     Route: 048
     Dates: start: 20091225, end: 20091231
  90. DASEN [Concomitant]
     Active Substance: SERRAPEPTASE
     Indication: BRONCHITIS
     Route: 048
     Dates: start: 20101228, end: 20110222
  91. LOXONIN [Concomitant]
     Active Substance: LOXOPROFEN SODIUM
     Indication: HERPES ZOSTER
     Route: 048
     Dates: start: 20080507
  92. LOXONIN [Concomitant]
     Active Substance: LOXOPROFEN SODIUM
     Route: 048
     Dates: start: 20140906, end: 20170126
  93. PREDONINE [Concomitant]
     Active Substance: PREDNISOLONE
     Route: 048
     Dates: start: 20080410, end: 20080507
  94. PREDONINE [Concomitant]
     Active Substance: PREDNISOLONE
     Route: 048
     Dates: start: 20080508, end: 20080702
  95. PREDONINE [Concomitant]
     Active Substance: PREDNISOLONE
     Route: 048
     Dates: start: 20090808, end: 20090819
  96. PREDONINE [Concomitant]
     Active Substance: PREDNISOLONE
     Route: 048
     Dates: start: 20090903, end: 20100119
  97. PREDONINE [Concomitant]
     Active Substance: PREDNISOLONE
     Route: 048
     Dates: start: 20131205, end: 20140115
  98. MIYA-BM [Concomitant]
     Active Substance: CLOSTRIDIUM BUTYRICUM SPORES STRAIN M-55
     Indication: PROPHYLAXIS
     Route: 048
  99. ALFAROL [Concomitant]
     Active Substance: ALFACALCIDOL
     Indication: PROPHYLAXIS
     Route: 048
     Dates: end: 20170124
  100. PRALIA [Concomitant]
     Active Substance: DENOSUMAB
     Route: 065
     Dates: start: 20160803, end: 20160803
  101. RINDERON VG [Concomitant]
     Active Substance: BETAMETHASONE VALERATE\GENTAMICIN SULFATE
     Dosage: ADEQUATE DOSE
     Route: 061
     Dates: start: 20100331, end: 20100608
  102. RINDERON VG [Concomitant]
     Active Substance: BETAMETHASONE VALERATE\GENTAMICIN SULFATE
     Dosage: ADEQUATE DOSE
     Route: 061
     Dates: start: 20110126, end: 20110126
  103. GENINAX [Concomitant]
     Active Substance: GARENOXACIN MESYLATE
     Indication: BRONCHITIS
     Route: 048
     Dates: start: 20151202, end: 20151206
  104. BREDININ [Concomitant]
     Active Substance: MIZORIBINE
     Indication: LUPUS NEPHRITIS
     Route: 048
     Dates: start: 20120202, end: 20120215
  105. RIMATIL [Concomitant]
     Active Substance: BUCILLAMINE
     Indication: ARTHRITIS
     Route: 048
     Dates: start: 20130116, end: 20130213
  106. ASTHPHYLLIN                        /00231301/ [Concomitant]
     Route: 048
     Dates: start: 20151202, end: 20151228
  107. MUCODYNE [Concomitant]
     Active Substance: CARBOCYSTEINE
     Indication: BRONCHITIS
     Route: 048
     Dates: start: 20101201, end: 20101227
  108. CRAVIT [Concomitant]
     Active Substance: LEVOFLOXACIN
     Indication: BRONCHITIS
     Route: 048
     Dates: start: 20101201, end: 20101204
  109. PREDONINE [Concomitant]
     Active Substance: PREDNISOLONE
     Route: 048
     Dates: start: 20090625, end: 20090729
  110. PREDONINE [Concomitant]
     Active Substance: PREDNISOLONE
     Route: 048
     Dates: start: 20140213, end: 20140311
  111. PREDONINE [Concomitant]
     Active Substance: PREDNISOLONE
     Route: 048
     Dates: start: 20150617, end: 20151117
  112. PREDONINE [Concomitant]
     Active Substance: PREDNISOLONE
     Route: 048
     Dates: start: 20160908, end: 20170125
  113. ANPLAG [Concomitant]
     Active Substance: SARPOGRELATE
     Route: 048
     Dates: start: 20171012, end: 20171025
  114. ADOFEED [Concomitant]
     Active Substance: FLURBIPROFEN
     Indication: ARTHRITIS
     Dosage: ADEQUATE DOSE
     Route: 065
     Dates: start: 20140212, end: 20140507
  115. PRALIA [Concomitant]
     Active Substance: DENOSUMAB
     Indication: OSTEOPOROSIS
     Route: 065
     Dates: start: 20151118, end: 20151118
  116. FAMVIR [Concomitant]
     Active Substance: FAMCICLOVIR
     Indication: HERPES ZOSTER
     Route: 048
     Dates: start: 20150826, end: 20150930

REACTIONS (13)
  - Arthritis [Recovering/Resolving]
  - Bronchitis [Recovered/Resolved]
  - Herpes zoster [Recovered/Resolved]
  - Systemic lupus erythematosus rash [Recovering/Resolving]
  - Osteonecrosis [Recovered/Resolved]
  - Alopecia areata [Recovered/Resolved]
  - Pain in extremity [Recovering/Resolving]
  - Gastroenteritis [Recovered/Resolved]
  - Tinea infection [Recovered/Resolved]
  - Arthritis [Recovering/Resolving]
  - Pharyngitis [Recovered/Resolved]
  - Bronchitis [Recovered/Resolved]
  - Sialoadenitis [Recovered/Resolved]

NARRATIVE: CASE EVENT DATE: 20080409
